FAERS Safety Report 17509001 (Version 1)
Quarter: 2020Q1

REPORT INFORMATION
  Report Type: Spontaneous
  Country: US (occurrence: US)
  Receive Date: 20200306
  Receipt Date: 20200306
  Transmission Date: 20200409
  Serious: Yes (Life-Threatening, Other)
  Sender: FDA-Public Use
  Company Number: None

PATIENT
  Age: 61 Year
  Sex: Male
  Weight: 112.5 kg

DRUGS (6)
  1. HUMIRA [Concomitant]
     Active Substance: ADALIMUMAB
  2. OLMESARTAN MEDOXOMIL AND AMLODIPINE BESYLATE AND HYDROCHLOROTHIAZIDE [Suspect]
     Active Substance: AMLODIPINE BESYLATE\HYDROCHLOROTHIAZIDE\OLMESARTAN MEDOXOMIL
     Indication: HYPERTENSION
     Dosage: ?          QUANTITY:1 TABLET(S);?
     Route: 048
     Dates: start: 20200201, end: 20200306
  3. VITAMIN B12 [Concomitant]
     Active Substance: CYANOCOBALAMIN
  4. ULORIC 80MG [Concomitant]
  5. D-3 [Concomitant]
     Active Substance: CHOLECALCIFEROL
  6. SLOW MAG [Concomitant]
     Active Substance: MAGNESIUM CHLORIDE

REACTIONS (6)
  - Drug ineffective [None]
  - Hypertensive crisis [None]
  - Product substitution issue [None]
  - Headache [None]
  - Product impurity [None]
  - Chest discomfort [None]

NARRATIVE: CASE EVENT DATE: 20200220
